FAERS Safety Report 7095534-8 (Version None)
Quarter: 2010Q4

REPORT INFORMATION
  Report Type: 
  Country: None (occurrence: None)
  Receive Date: 20101111
  Receipt Date: 20101028
  Transmission Date: 20110411
  Serious: Yes (Hospitalization, Other)
  Sender: FDA-Public Use
  Company Number: FR-JNJFOC-20101101049

PATIENT
  Sex: Female
  Weight: 5.46 kg

DRUGS (3)
  1. MOTILIUM [Suspect]
     Indication: REGURGITATION
     Dosage: 3 SPOONS A DAY
     Route: 048
     Dates: start: 20100715, end: 20100716
  2. DAKTARIN [Suspect]
     Route: 002
     Dates: start: 20100715
  3. DAKTARIN [Suspect]
     Indication: PRODUCT USED FOR UNKNOWN INDICATION
     Route: 002
     Dates: start: 20100715

REACTIONS (5)
  - DYSKINESIA [None]
  - DYSTONIA [None]
  - GAZE PALSY [None]
  - OPISTHOTONUS [None]
  - TEARFULNESS [None]
